FAERS Safety Report 4557298-9 (Version None)
Quarter: 2005Q1

REPORT INFORMATION
  Report Type: 
  Country: None (occurrence: None)
  Receive Date: 20050118
  Receipt Date: 20050107
  Transmission Date: 20050727
  Serious: Yes (Hospitalization)
  Sender: FDA-Public Use
  Company Number: 032-0981-990009

PATIENT
  Age: 65 Year
  Sex: Male

DRUGS (5)
  1. ATORVASTATIN (ATORVASTATIN) [Suspect]
     Indication: CORONARY ARTERY DISEASE
     Dosage: 10 MG (1 IN 1 D), ORAL
     Route: 048
     Dates: start: 19980807, end: 19981001
  2. ATORVASTATIN (ATORVASTATIN) [Suspect]
     Indication: CORONARY ARTERY DISEASE
     Dosage: 10 MG (1 IN 1 D), ORAL
     Route: 048
     Dates: start: 19981002
  3. METOPROLOL TARTRATE [Concomitant]
  4. ASPIRIN [Concomitant]
  5. FACTOR X (STUART PROWER FACTOR) (FACTOR X (STUART PROWER FACTOR)) [Concomitant]

REACTIONS (2)
  - EPIDIDYMITIS [None]
  - PROSTATITIS [None]
